FAERS Safety Report 6087253-1 (Version None)
Quarter: 2009Q1

REPORT INFORMATION
  Report Type: 
  Country: None (occurrence: None)
  Receive Date: 20090219
  Receipt Date: 20090219
  Transmission Date: 20090719
  Serious: Yes (Disabling, Other)
  Sender: FDA-Public Use
  Company Number: None

PATIENT
  Age: 76 Year
  Sex: Female
  Weight: 53.5244 kg

DRUGS (1)
  1. RECLAST [Suspect]
     Indication: OSTEOPOROSIS
     Dosage: INFUSION ONCE
     Dates: start: 20080912

REACTIONS (8)
  - EAR PAIN [None]
  - NECK PAIN [None]
  - OROPHARYNGEAL PAIN [None]
  - OSTEONECROSIS [None]
  - TEMPERATURE INTOLERANCE [None]
  - TOOTH INFECTION [None]
  - TOOTHACHE [None]
  - TRISMUS [None]
